FAERS Safety Report 15572244 (Version 9)
Quarter: 2023Q4

REPORT INFORMATION
  Report Type: Spontaneous
  Country: SK (occurrence: SK)
  Receive Date: 20181031
  Receipt Date: 20231016
  Transmission Date: 20240109
  Serious: Yes (Hospitalization, Other)
  Sender: FDA-Public Use
  Company Number: SK-MERCK KGAA-9029507

PATIENT
  Age: 66 Year
  Sex: Male

DRUGS (26)
  1. METFORMIN [Suspect]
     Active Substance: METFORMIN HYDROCHLORIDE
     Indication: Type 2 diabetes mellitus
     Dosage: 1700 MILLIGRAM, QD
     Route: 065
     Dates: start: 200103
  2. METFORMIN [Suspect]
     Active Substance: METFORMIN HYDROCHLORIDE
     Dosage: 1000 MILLIGRAM, BID
     Route: 065
     Dates: start: 200504, end: 201106
  3. METFORMIN [Suspect]
     Active Substance: METFORMIN HYDROCHLORIDE
     Dosage: 2000 MILLIGRAM, QD
     Route: 065
  4. METFORMIN [Suspect]
     Active Substance: METFORMIN HYDROCHLORIDE
     Dosage: 850 MILLIGRAM, BID, (2X/DAY)
     Route: 065
  5. PERINDOPRIL [Suspect]
     Active Substance: PERINDOPRIL
     Indication: Hypertension
     Dosage: 4 MILLIGRAM, QD
     Route: 065
  6. PERINDOPRIL [Suspect]
     Active Substance: PERINDOPRIL
     Dosage: 10 MILLIGRAM, QD
     Route: 065
     Dates: start: 201601
  7. ATORVASTATIN [Suspect]
     Active Substance: ATORVASTATIN
     Indication: Product used for unknown indication
     Dosage: 40 MILLIGRAM, QD
     Route: 065
     Dates: start: 200508, end: 201106
  8. ATORVASTATIN [Suspect]
     Active Substance: ATORVASTATIN
     Dosage: 80 MILLIGRAM, QD
     Route: 065
     Dates: start: 201601
  9. ATORVASTATIN [Suspect]
     Active Substance: ATORVASTATIN
     Dosage: 20 MG,QD(LATER INCREASED TO 40 MG DAILY)(1X/DAY)
     Route: 065
  10. ATORVASTATIN [Suspect]
     Active Substance: ATORVASTATIN
     Dosage: UNK
     Route: 065
  11. BISOPROLOL FUMARATE [Suspect]
     Active Substance: BISOPROLOL FUMARATE
     Indication: Product used for unknown indication
     Dosage: 5 MILLIGRAM, QD
     Route: 065
     Dates: start: 200508
  12. BISOPROLOL FUMARATE [Suspect]
     Active Substance: BISOPROLOL FUMARATE
     Dosage: 5 MILLIGRAM, QD
     Route: 065
  13. BISOPROLOL FUMARATE [Suspect]
     Active Substance: BISOPROLOL FUMARATE
     Dosage: 5 MILLIGRAM, QD
     Route: 065
     Dates: start: 201601
  14. INDAPAMIDE [Suspect]
     Active Substance: INDAPAMIDE
     Indication: Product used for unknown indication
     Dosage: 2.5 MILLIGRAM, QD
     Route: 065
     Dates: start: 201601
  15. SITAGLIPTIN [Suspect]
     Active Substance: SITAGLIPTIN
     Indication: Type 2 diabetes mellitus
     Dosage: 10 MILLIGRAM, QD
     Route: 065
     Dates: start: 201307, end: 201601
  16. SITAGLIPTIN [Suspect]
     Active Substance: SITAGLIPTIN
     Dosage: 100 MILLIGRAM, QD, DAILY
     Route: 065
  17. SITAGLIPTIN [Suspect]
     Active Substance: SITAGLIPTIN
     Dosage: 100 MILLIGRAM, QD
     Route: 065
     Dates: start: 201307, end: 201601
  18. SITAGLIPTIN [Suspect]
     Active Substance: SITAGLIPTIN
     Dosage: 100 MILLIGRAM, QD
     Route: 065
     Dates: start: 201307, end: 201601
  19. INSULIN HUMAN [Suspect]
     Active Substance: INSULIN HUMAN
     Indication: Type 2 diabetes mellitus
     Dosage: 10-0-10 IU UNITS TITRATED UPTO 16-0-14 IU UNITS
     Route: 058
  20. INSULIN HUMAN [Suspect]
     Active Substance: INSULIN HUMAN
     Dosage: 2 DOSAGE FORM, QD (16-0-14 IU)
     Route: 058
     Dates: start: 2014
  21. INSULIN HUMAN [Suspect]
     Active Substance: INSULIN HUMAN
     Dosage: 2 DOSAGE FORM, QD, (10-0-10 UNITS 2X/DAY)
     Route: 058
  22. GLIMEPIRIDE [Suspect]
     Active Substance: GLIMEPIRIDE
     Indication: Type 2 diabetes mellitus
     Dosage: 4 MILLIGRAM, QD
     Route: 065
     Dates: start: 200504, end: 201601
  23. AMLODIPINE [Suspect]
     Active Substance: AMLODIPINE BESYLATE
     Indication: Hypertension
     Dosage: 5 MILLIGRAM, QD
     Route: 065
  24. AMLODIPINE [Suspect]
     Active Substance: AMLODIPINE BESYLATE
     Dosage: 10 MILLIGRAM, QD
     Route: 065
     Dates: start: 201601
  25. RIVAROXABAN [Concomitant]
     Active Substance: RIVAROXABAN
     Indication: Product used for unknown indication
     Dosage: UNK
     Route: 065
  26. EMPAGLIFLOZIN [Concomitant]
     Active Substance: EMPAGLIFLOZIN
     Indication: Product used for unknown indication
     Dosage: 10 MILLIGRAM
     Route: 065

REACTIONS (9)
  - Myocardial infarction [Recovered/Resolved]
  - Diabetes mellitus [Recovered/Resolved]
  - Acute myocardial infarction [Recovered/Resolved]
  - Drug ineffective [Recovered/Resolved]
  - Glycosylated haemoglobin increased [Recovering/Resolving]
  - Weight increased [Recovering/Resolving]
  - Glycosylated haemoglobin decreased [Recovering/Resolving]
  - Hypertension [Recovered/Resolved]
  - Hyperlipidaemia [Recovered/Resolved]

NARRATIVE: CASE EVENT DATE: 20050801
